FAERS Safety Report 6465067-8 (Version None)
Quarter: 2009Q4

REPORT INFORMATION
  Report Type: 
  Country: None (occurrence: None)
  Receive Date: 20091201
  Receipt Date: 20091126
  Transmission Date: 20100525
  Serious: Yes (Death)
  Sender: FDA-Public Use
  Company Number: NL-WYE-H12077509

PATIENT
  Sex: Male
  Weight: 92 kg

DRUGS (6)
  1. TORISEL [Suspect]
     Indication: RENAL CELL CARCINOMA
     Route: 042
     Dates: start: 20091105, end: 20091105
  2. FENTANYL-100 [Concomitant]
     Indication: PAIN
     Dosage: NOT PROVIDED
     Route: 065
     Dates: start: 20091101
  3. PRIMPERAN TAB [Concomitant]
     Indication: NAUSEA
     Dosage: NOT PROVIDED
     Route: 065
     Dates: start: 20091101
  4. NEXIUM [Concomitant]
     Dosage: 80 MG - FREQUENCY NOT PROVIDED
     Route: 048
     Dates: start: 20090701
  5. BEVACIZUMAB, TEST ARTICLE IN TEMSIROLIMUS STUDY [Suspect]
     Indication: RENAL CELL CARCINOMA
     Route: 042
     Dates: start: 20091105, end: 20091105
  6. DALACIN [Concomitant]
     Indication: PYREXIA
     Dosage: 1000 MG - FREQUENCY NOT SPECIFIED
     Route: 048
     Dates: start: 20091106, end: 20091108

REACTIONS (2)
  - ABDOMINAL DISTENSION [None]
  - ABDOMINAL PAIN [None]
